FAERS Safety Report 18479237 (Version 3)
Quarter: 2020Q4

REPORT INFORMATION
  Report Type: Spontaneous
  Country: US (occurrence: US)
  Receive Date: 20201109
  Receipt Date: 20201218
  Transmission Date: 20210114
  Serious: Yes (Death, Life-Threatening, Hospitalization, Other)
  Sender: FDA-Public Use
  Company Number: US-ACCORD-207616

PATIENT
  Age: 44 Year
  Sex: Female
  Weight: 70.2 kg

DRUGS (2)
  1. CARBOPLATIN. [Suspect]
     Active Substance: CARBOPLATIN
     Indication: CERVIX CARCINOMA STAGE III
     Dosage: 1 TOTAL
     Route: 042
     Dates: start: 20191010
  2. CISPLATIN. [Suspect]
     Active Substance: CISPLATIN
     Indication: CERVIX CARCINOMA STAGE III
     Dosage: 3 TOTAL, PATIENT ADMINISTERED CYCLIC CISPLATIN 40 MG/M2 IV ON 8/12/19, 8/19/19, AND 8/26/19
     Route: 042
     Dates: start: 20191012

REACTIONS (15)
  - Coagulopathy [Fatal]
  - Cardiac arrest [Fatal]
  - Metabolic acidosis [Fatal]
  - Mental status changes [Not Recovered/Not Resolved]
  - Off label use [Unknown]
  - Hypovolaemic shock [Fatal]
  - Encephalopathy [Fatal]
  - Deep vein thrombosis [Unknown]
  - Hepatitis B reactivation [Fatal]
  - Hypoglycaemia [Fatal]
  - Acute hepatic failure [Fatal]
  - Ventricular tachycardia [Fatal]
  - Cytopenia [Unknown]
  - Ototoxicity [Unknown]
  - Pulmonary embolism [Unknown]

NARRATIVE: CASE EVENT DATE: 2019
